FAERS Safety Report 23312903 (Version 2)
Quarter: 2024Q1

REPORT INFORMATION
  Report Type: Other
  Country: JP (occurrence: None)
  Receive Date: 20231219
  Receipt Date: 20240205
  Transmission Date: 20240410
  Serious: Yes (Hospitalization)
  Sender: FDA-Public Use
  Company Number: JP-ROCHE-3475285

PATIENT
  Age: 64 Year
  Sex: Male

DRUGS (3)
  1. OBINUTUZUMAB [Suspect]
     Active Substance: OBINUTUZUMAB
     Indication: Follicular lymphoma
     Route: 065
  2. TIXAGEVIMAB [Concomitant]
     Active Substance: TIXAGEVIMAB
  3. CILGAVIMAB [Concomitant]
     Active Substance: CILGAVIMAB

REACTIONS (1)
  - COVID-19 [Unknown]
